FAERS Safety Report 5851280-7 (Version None)
Quarter: 2008Q3

REPORT INFORMATION
  Report Type: 
  Country: None (occurrence: None)
  Receive Date: 20080820
  Receipt Date: 20080811
  Transmission Date: 20090109
  Serious: Yes (Hospitalization)
  Sender: FDA-Public Use
  Company Number: US-ELI_LILLY_AND_COMPANY-US200808001900

PATIENT
  Age: 74 Year
  Sex: Female

DRUGS (3)
  1. FORTEO [Suspect]
  2. SYNTHROID [Concomitant]
     Dosage: 0.125 UG, UNK
     Dates: end: 20080801
  3. SYNTHROID [Concomitant]
     Dosage: 0.062 UG, UNK
     Dates: start: 20080801

REACTIONS (1)
  - ANGINA PECTORIS [None]
